FAERS Safety Report 18464774 (Version 2)
Quarter: 2020Q4

REPORT INFORMATION
  Report Type: Spontaneous
  Country: JP (occurrence: JP)
  Receive Date: 20201105
  Receipt Date: 20201125
  Transmission Date: 20210114
  Serious: Yes (Hospitalization)
  Sender: FDA-Public Use
  Company Number: JP-TAKEDA-2020TJP023705

PATIENT
  Sex: Female

DRUGS (3)
  1. TRINTELLIX [Suspect]
     Active Substance: VORTIOXETINE HYDROBROMIDE
     Indication: DEPRESSION
     Dosage: 20 MILLIGRAM
     Route: 048
     Dates: start: 20200620
  2. ARIPIPRAZOLE. [Concomitant]
     Active Substance: ARIPIPRAZOLE
     Dosage: UNK
     Route: 065
  3. DOGMATYL [Concomitant]
     Active Substance: SULPIRIDE
     Dosage: UNK
     Route: 065

REACTIONS (2)
  - Fall [Recovered/Resolved]
  - Fracture [Recovered/Resolved]

NARRATIVE: CASE EVENT DATE: 20200820
